FAERS Safety Report 25880887 (Version 1)
Quarter: 2025Q4

REPORT INFORMATION
  Report Type: Other
  Country: IN (occurrence: IN)
  Receive Date: 20251004
  Receipt Date: 20251004
  Transmission Date: 20260118
  Serious: Yes (Death, Other)
  Sender: ANI
  Company Number: IN-ANIPHARMA-030798

PATIENT

DRUGS (5)
  1. CYCLOPHOSPHAMIDE [Suspect]
     Active Substance: CYCLOPHOSPHAMIDE
     Indication: Extra-osseous Ewing^s sarcoma
     Dosage: CHEMOTHERAPY WITH (VDC-IE REGIMEN)
  2. VINCRISTINE [Concomitant]
     Active Substance: VINCRISTINE
     Indication: Extra-osseous Ewing^s sarcoma
     Dosage: CHEMOTHERAPY WITH (VDC-IE REGIMEN)
  3. ADRIAMYCIN [Concomitant]
     Active Substance: DOXORUBICIN HYDROCHLORIDE
     Indication: Extra-osseous Ewing^s sarcoma
     Dosage: CHEMOTHERAPY WITH (VDC-IE REGIMEN)
  4. IFOSFAMIDE [Concomitant]
     Active Substance: IFOSFAMIDE
     Indication: Extra-osseous Ewing^s sarcoma
     Dosage: CHEMOTHERAPY WITH (VDC-IE REGIMEN)
  5. ETOPOSIDE [Concomitant]
     Active Substance: ETOPOSIDE
     Indication: Extra-osseous Ewing^s sarcoma
     Dosage: CHEMOTHERAPY WITH (VDC-IE REGIMEN)

REACTIONS (1)
  - Neutropenic sepsis [Fatal]
